FAERS Safety Report 8501866 (Version 2)
Quarter: 2012Q4

REPORT INFORMATION
  Report Type: 
  Country: US (occurrence: US)
  Receive Date: 20120410
  Receipt Date: 20120913
  Transmission Date: 20130627
  Serious: Yes (Hospitalization, Other)
  Sender: FDA-Public Use
  Company Number: US-BAYER-2012-032760

PATIENT
  Age: 42 Year
  Sex: Female
  Weight: 120 kg

DRUGS (24)
  1. YAZ [Suspect]
     Dosage: UNK
     Dates: start: 20071010, end: 201005
  2. LEVOXYL [Concomitant]
     Indication: THYROID DISORDER
     Dosage: UNK
     Dates: start: 198606
  3. APAP [Concomitant]
     Indication: PAIN
     Dosage: UNK
     Dates: start: 2001
  4. COUMADIN [Concomitant]
     Indication: ATRIAL FIBRILLATION
     Dosage: 4 mg, daily
     Dates: start: 2003
  5. COUMADIN [Concomitant]
     Indication: DEEP VEIN THROMBOSIS
  6. COUMADIN [Concomitant]
     Indication: ANTICOAGULANT THERAPY
  7. ATIVAN [Concomitant]
     Indication: MENTAL DISORDER
     Dosage: 0.5 mg, PRN
     Dates: start: 2003
  8. PROMETHAZINE [Concomitant]
     Indication: NAUSEA
     Dosage: UNK
     Dates: start: 2004
  9. INDERAL [Concomitant]
     Indication: ATRIAL FIBRILLATION
     Dosage: 30 mg, BID
     Dates: start: 2004
  10. INDERAL [Concomitant]
     Indication: HEART RATE ABNORMAL
  11. DOXYCYCLINE [Concomitant]
     Dosage: 50 mg, UNK
     Dates: start: 20080422
  12. AMIODARONE [Concomitant]
     Dosage: 200 mg, UNK
     Dates: start: 20080429
  13. AMIODARONE [Concomitant]
     Dosage: 300 mg, daily
     Dates: start: 20080707
  14. LOVENOX [Concomitant]
     Dosage: 40/0.4ml
     Dates: start: 20080307
  15. APAP CODEINE [Concomitant]
     Dosage: 300-30
     Dates: start: 20080507, end: 20080617
  16. AMOXICILLIN [Concomitant]
     Dosage: 500 mg, UNK
     Dates: start: 20080618
  17. DIAZEPAM [Concomitant]
     Dosage: 5 mg, UNK
     Dates: start: 20080623
  18. TYLENOL #3 [Concomitant]
     Dosage: UNK
     Dates: start: 20080707
  19. PHENERGAN [Concomitant]
     Dosage: UNK
     Dates: start: 20080707
  20. WARFARIN [Concomitant]
     Dosage: 4 mg, UNK
     Dates: start: 20040526, end: 20080801
  21. PROPRANOLOL [Concomitant]
     Dosage: 20 mg, UNK
     Dates: start: 20040512, end: 20080811
  22. NORPACE [Concomitant]
     Dosage: UNK
  23. RYTHMOL [Concomitant]
     Dosage: UNK
  24. FLECAINIDE [Concomitant]
     Dosage: UNK

REACTIONS (6)
  - Jugular vein thrombosis [None]
  - Peripheral artery thrombosis [None]
  - Peripheral artery thrombosis [None]
  - Thrombosis [None]
  - Injury [None]
  - Pain [None]
